FAERS Safety Report 8881413 (Version 2)
Quarter: 2012Q4

REPORT INFORMATION
  Report Type: 
  Country: JP (occurrence: JP)
  Receive Date: 20121101
  Receipt Date: 20121107
  Transmission Date: 20130627
  Serious: Yes (Other)
  Sender: FDA-Public Use
  Company Number: JP-ROCHE-1150168

PATIENT
  Age: 66 Year
  Sex: Male

DRUGS (5)
  1. CELLCEPT [Suspect]
     Indication: PRODUCT USED FOR UNKNOWN INDICATION
     Route: 048
  2. TACROLIMUS [Concomitant]
     Route: 048
  3. PREDNISOLONE [Concomitant]
     Route: 065
  4. PREDNISOLONE [Concomitant]
     Route: 065
  5. BASILIXIMAB [Concomitant]
     Route: 041

REACTIONS (3)
  - Interstitial lung disease [Unknown]
  - Pulmonary oedema [Unknown]
  - Colitis ischaemic [Unknown]
